FAERS Safety Report 23113410 (Version 1)
Quarter: 2023Q4

REPORT INFORMATION
  Report Type: Spontaneous
  Country: CN (occurrence: None)
  Receive Date: 20231027
  Receipt Date: 20231027
  Transmission Date: 20240109
  Serious: Yes (Disabling)
  Sender: FDA-Public Use
  Company Number: CN-ROCHE-3444425

PATIENT
  Age: 78 Year
  Sex: Male

DRUGS (3)
  1. ALECENSA [Suspect]
     Active Substance: ALECTINIB HYDROCHLORIDE
     Indication: Lung neoplasm malignant
     Route: 048
     Dates: start: 20231008, end: 20231016
  2. ALECENSA [Suspect]
     Active Substance: ALECTINIB HYDROCHLORIDE
     Route: 048
  3. ENSARTINIB [Concomitant]
     Active Substance: ENSARTINIB
     Indication: Lung neoplasm malignant
     Route: 048

REACTIONS (3)
  - Syncope [Recovering/Resolving]
  - Sinus bradycardia [Recovering/Resolving]
  - Myocardial necrosis marker increased [Recovering/Resolving]

NARRATIVE: CASE EVENT DATE: 20231016
